FAERS Safety Report 20432902 (Version 2)
Quarter: 2022Q1

REPORT INFORMATION
  Report Type: Spontaneous
  Country: US (occurrence: US)
  Receive Date: 20220205
  Receipt Date: 20220302
  Transmission Date: 20220423
  Serious: No
  Sender: FDA-Public Use
  Company Number: US-SA-SAC20220128000154

PATIENT
  Age: 23 Year
  Sex: Male

DRUGS (8)
  1. CEREZYME [Suspect]
     Active Substance: IMIGLUCERASE
     Indication: Lipidosis
     Dosage: 4400 IU/ML, QOW
     Route: 042
     Dates: start: 20041115
  2. CEREZYME [Suspect]
     Active Substance: IMIGLUCERASE
     Indication: Fabry^s disease
  3. CEREZYME [Suspect]
     Active Substance: IMIGLUCERASE
     Indication: Gaucher^s disease
  4. EPINEPHRINE [Concomitant]
     Active Substance: EPINEPHRINE
  5. IBUPROFEN [Concomitant]
     Active Substance: IBUPROFEN
  6. BENADRYL [Concomitant]
     Active Substance: DIPHENHYDRAMINE HYDROCHLORIDE
  7. CIPROFLOXCN [Concomitant]
  8. SODIUM CHLORIDE [Concomitant]
     Active Substance: SODIUM CHLORIDE

REACTIONS (5)
  - COVID-19 [Unknown]
  - Malaise [Unknown]
  - Oropharyngeal pain [Unknown]
  - Product use in unapproved indication [Unknown]
  - Product dose omission issue [Unknown]

NARRATIVE: CASE EVENT DATE: 20041115
